FAERS Safety Report 7687300-7 (Version None)
Quarter: 2011Q3

REPORT INFORMATION
  Report Type: 
  Country: None (occurrence: None)
  Receive Date: 20110816
  Receipt Date: 20110719
  Transmission Date: 20111222
  Serious: Yes (Other)
  Sender: FDA-Public Use
  Company Number: US-ASTRAZENECA-2011SE43414

PATIENT
  Age: 46 Year
  Sex: Female

DRUGS (2)
  1. MORPHINE [Concomitant]
  2. NEXIUM [Suspect]
     Route: 048

REACTIONS (4)
  - DRUG DOSE OMISSION [None]
  - GASTRIC DISORDER [None]
  - PNEUMONIA [None]
  - INTERVERTEBRAL DISC PROTRUSION [None]
